FAERS Safety Report 7529435-5 (Version None)
Quarter: 2011Q2

REPORT INFORMATION
  Report Type: 
  Country: None (occurrence: None)
  Receive Date: 20110520
  Receipt Date: 20110216
  Transmission Date: 20111010
  Serious: No
  Sender: FDA-Public Use
  Company Number: 027727

PATIENT
  Age: 47 Year
  Sex: Female
  Weight: 81.6 kg

DRUGS (5)
  1. OMEGA-3 FATTY ACIDS [Concomitant]
  2. TOPAMAX [Concomitant]
  3. TRILEPTAL [Concomitant]
  4. CLONOPIN [Concomitant]
  5. LACOSAMIDE [Suspect]
     Indication: CONVULSION
     Dosage: (50 MG BID ORAL)
     Route: 048
     Dates: start: 20110210

REACTIONS (1)
  - CONVULSION [None]
